FAERS Safety Report 20063234 (Version 1)
Quarter: 2021Q4

REPORT INFORMATION
  Report Type: Spontaneous
  Country: FR (occurrence: FR)
  Receive Date: 20211112
  Receipt Date: 20211112
  Transmission Date: 20220303
  Serious: Yes (Hospitalization)
  Sender: FDA-Public Use
  Company Number: None

PATIENT
  Age: 53 Year
  Sex: Female

DRUGS (4)
  1. ALPRAZOLAM [Suspect]
     Active Substance: ALPRAZOLAM
     Dosage: 30 DF
     Route: 048
     Dates: start: 20210703, end: 20210703
  2. OXAZEPAM [Suspect]
     Active Substance: OXAZEPAM
     Dosage: 150 MG
     Route: 048
     Dates: end: 20210706
  3. FLUOXETINE HYDROCHLORIDE [Concomitant]
     Active Substance: FLUOXETINE HYDROCHLORIDE
     Dosage: 20 MG
     Route: 048
  4. BUPRENORPHINE [Concomitant]
     Active Substance: BUPRENORPHINE
     Route: 060

REACTIONS (3)
  - Drug abuse [Recovered/Resolved]
  - Generalised tonic-clonic seizure [Recovered/Resolved]
  - Drug withdrawal syndrome [Recovered/Resolved]

NARRATIVE: CASE EVENT DATE: 20210703
